FAERS Safety Report 18134610 (Version 1)
Quarter: 2020Q3

REPORT INFORMATION
  Report Type: Spontaneous
  Country: US (occurrence: US)
  Receive Date: 20200810
  Receipt Date: 20200810
  Transmission Date: 20201103
  Serious: Yes (Hospitalization)
  Sender: FDA-Public Use
  Company Number: None

PATIENT
  Sex: Female

DRUGS (21)
  1. DOXYCYCL HYC [Concomitant]
  2. LEVOFLOXACIN. [Concomitant]
     Active Substance: LEVOFLOXACIN
  3. HYDROCO/APAP [Concomitant]
     Active Substance: ACETAMINOPHEN\HYDROCODONE
  4. PROCRIT [Concomitant]
     Active Substance: ERYTHROPOIETIN
  5. TAMOIXIFEN [Concomitant]
  6. MUPIROCIN. [Concomitant]
     Active Substance: MUPIROCIN
  7. SANTYL OIN [Concomitant]
  8. UDENYCA [Suspect]
     Active Substance: PEGFILGRASTIM-CBQV
     Indication: ANAEMIA
     Route: 058
     Dates: start: 20200521
  9. FUROSEMIDE. [Concomitant]
     Active Substance: FUROSEMIDE
  10. NYSTATIN. [Concomitant]
     Active Substance: NYSTATIN
  11. PREGABALIN. [Concomitant]
     Active Substance: PREGABALIN
  12. ASPIRIN. [Concomitant]
     Active Substance: ASPIRIN
  13. GENTAMICIN. [Concomitant]
     Active Substance: GENTAMICIN
  14. LORAZEPAM. [Concomitant]
     Active Substance: LORAZEPAM
  15. ONDANSETRON [Concomitant]
     Active Substance: ONDANSETRON
  16. ZOLPIDEM [Concomitant]
     Active Substance: ZOLPIDEM TARTRATE
  17. ENALAPRIL [Concomitant]
     Active Substance: ENALAPRIL
  18. LIDOCAINE. [Concomitant]
     Active Substance: LIDOCAINE
  19. SMZ/TMP DS [Concomitant]
     Active Substance: SULFAMETHOXAZOLE\TRIMETHOPRIM
  20. CIPROFLOXACN [Concomitant]
     Active Substance: CIPROFLOXACIN
  21. PANTOPRAZOLE [Concomitant]
     Active Substance: PANTOPRAZOLE

REACTIONS (1)
  - Hospitalisation [None]
